FAERS Safety Report 4610206-4 (Version None)
Quarter: 2005Q1

REPORT INFORMATION
  Report Type: 
  Country: None (occurrence: None)
  Receive Date: 20050301
  Receipt Date: 20041115
  Transmission Date: 20050727
  Serious: No
  Sender: FDA-Public Use
  Company Number: WAES 0411USA02572

PATIENT
  Sex: Male

DRUGS (1)
  1. ZETIA [Suspect]
     Dosage: 10 MG DAILY PO
     Route: 048

REACTIONS (2)
  - MUSCULAR WEAKNESS [None]
  - MYOPATHY [None]
